FAERS Safety Report 17573996 (Version 2)
Quarter: 2021Q2

REPORT INFORMATION
  Report Type: Spontaneous
  Country: CA (occurrence: CA)
  Receive Date: 20200323
  Receipt Date: 20210527
  Transmission Date: 20210716
  Serious: Yes (Hospitalization, Other)
  Sender: FDA-Public Use
  Company Number: CA-CIPHER-2020-CA-000315

PATIENT
  Age: 78 Year
  Sex: Female

DRUGS (30)
  1. FUROSEMIDE. [Suspect]
     Active Substance: FUROSEMIDE
     Indication: OEDEMA PERIPHERAL
     Dosage: 40 MG ONCE DAILY
  2. SALBUTAMOL [Suspect]
     Active Substance: ALBUTEROL
     Indication: PRODUCT USED FOR UNKNOWN INDICATION
  3. ALLOPURINOL. [Suspect]
     Active Substance: ALLOPURINOL
     Indication: PROPHYLAXIS
  4. CALCIPOTRIOL [Suspect]
     Active Substance: CALCIPOTRIENE
     Indication: PSORIASIS
  5. HYDRALAZINE [Suspect]
     Active Substance: HYDRALAZINE HYDROCHLORIDE
     Indication: PRODUCT USED FOR UNKNOWN INDICATION
  6. ACETAMINOPHEN. [Concomitant]
     Active Substance: ACETAMINOPHEN
  7. FLUTICASONE. [Suspect]
     Active Substance: FLUTICASONE
     Indication: WHEEZING
     Dosage: 2 DOSAGE FORMS TWICE DAILY
  8. LABETALOL [Suspect]
     Active Substance: LABETALOL\LABETALOL HYDROCHLORIDE
     Indication: HYPERTENSION
  9. METHOCARBAMOL. [Suspect]
     Active Substance: METHOCARBAMOL
     Indication: PRODUCT USED FOR UNKNOWN INDICATION
  10. PANTOPRAZOLE [Suspect]
     Active Substance: PANTOPRAZOLE
     Indication: PRODUCT USED FOR UNKNOWN INDICATION
     Dosage: 40MG ONCE DAILY
  11. SIMVASTATIN. [Suspect]
     Active Substance: SIMVASTATIN
     Indication: PRODUCT USED FOR UNKNOWN INDICATION
  12. VALSARTAN. [Suspect]
     Active Substance: VALSARTAN
     Indication: HYPERTENSION
  13. ACETYLSALICYLIC ACID [Suspect]
     Active Substance: ASPIRIN
     Indication: CEREBROVASCULAR ACCIDENT
     Dosage: 81 MG ONCE DAILY
  14. CALCIUM [Suspect]
     Active Substance: CALCIUM
     Indication: PRODUCT USED FOR UNKNOWN INDICATION
  15. RISEDRONATE SODIUM. [Suspect]
     Active Substance: RISEDRONATE SODIUM
     Indication: OSTEOPOROSIS
  16. TRAMADOL HYDROCHLORIDE. [Suspect]
     Active Substance: TRAMADOL HYDROCHLORIDE
     Indication: PAIN
  17. VITAMIN B12 [Suspect]
     Active Substance: CYANOCOBALAMIN
     Indication: PRODUCT USED FOR UNKNOWN INDICATION
  18. ERGOCALCIFEROL. [Concomitant]
     Active Substance: ERGOCALCIFEROL
  19. GLICLAZIDE [Suspect]
     Active Substance: GLICLAZIDE
     Indication: PRODUCT USED FOR UNKNOWN INDICATION
     Dosage: 30 MG TWICE DAILY
  20. SITAGLIPTIN [Concomitant]
     Active Substance: SITAGLIPTIN
     Indication: PRODUCT USED FOR UNKNOWN INDICATION
  21. AMLODIPINE [Suspect]
     Active Substance: AMLODIPINE BESYLATE
     Indication: HYPERTENSION
     Dosage: 10 MG ONCE DAILY
  22. ACEBUTOLOL [Suspect]
     Active Substance: ACEBUTOLOL
     Indication: HYPERTENSION
  23. LEVOTHYROXINE. [Suspect]
     Active Substance: LEVOTHYROXINE
     Indication: HYPERTENSION
     Dosage: 0.088 ONCE DAILY
  24. RANITIDINE. [Suspect]
     Active Substance: RANITIDINE
     Indication: DYSPEPSIA
  25. ALISKIREN [Suspect]
     Active Substance: ALISKIREN
     Indication: PRODUCT USED FOR UNKNOWN INDICATION
     Dosage: 300 MG ONCE DAILY
  26. PLANTAGO AFRA [Concomitant]
     Active Substance: HERBALS
     Indication: PRODUCT USED FOR UNKNOWN INDICATION
  27. PRAMIPEXOLE. [Suspect]
     Active Substance: PRAMIPEXOLE
     Indication: RESTLESS LEGS SYNDROME
  28. BETAMETHASONE. [Suspect]
     Active Substance: BETAMETHASONE
     Indication: PSORIASIS
  29. METFORMIN [Suspect]
     Active Substance: METFORMIN HYDROCHLORIDE
     Indication: DIABETES MELLITUS
  30. CALCIUM GLUCONATE. [Suspect]
     Active Substance: CALCIUM GLUCONATE

REACTIONS (5)
  - Diabetes mellitus inadequate control [Unknown]
  - Contusion [Unknown]
  - Hypertension [Unknown]
  - Peripheral swelling [Unknown]
  - Drug ineffective [Unknown]
